FAERS Safety Report 10468825 (Version 1)
Quarter: 2014Q3

REPORT INFORMATION
  Report Type: Spontaneous
  Country: TR (occurrence: TR)
  Receive Date: 20140923
  Receipt Date: 20140923
  Transmission Date: 20150326
  Serious: Yes (Hospitalization)
  Sender: FDA-Public Use
  Company Number: PHHY2014TR120473

PATIENT
  Age: 35 Year
  Sex: Female

DRUGS (2)
  1. AZITHROMYCIN [Suspect]
     Active Substance: AZITHROMYCIN ANHYDROUS
     Indication: URINARY TRACT INFECTION
     Dosage: 1 G, ONCE/SINGLE
  2. ERGOTAMINE [Interacting]
     Active Substance: CAFFEINE\ERGOTAMINE\ERGOTAMINE TARTRATE
     Indication: MIGRAINE

REACTIONS (5)
  - Peripheral ischaemia [Recovered/Resolved]
  - Pain in extremity [Recovered/Resolved]
  - Pallor [Recovered/Resolved]
  - Vasospasm [Recovered/Resolved]
  - Vasoconstriction [Recovered/Resolved]
